FAERS Safety Report 5408732-3 (Version None)
Quarter: 2007Q3

REPORT INFORMATION
  Report Type: 
  Country: None (occurrence: None)
  Receive Date: 20070808
  Receipt Date: 20070802
  Transmission Date: 20080115
  Serious: Yes (Other)
  Sender: FDA-Public Use
  Company Number: B0477238A

PATIENT
  Sex: Male

DRUGS (4)
  1. LANOXIN [Suspect]
     Indication: ARRHYTHMIA
     Dosage: .25MG PER DAY
     Route: 048
     Dates: start: 20070614
  2. BISOPROLOLFUMARAT [Concomitant]
     Dosage: 5MG PER DAY
     Route: 048
     Dates: start: 20070620
  3. ACENOCOUMAROL [Concomitant]
     Route: 048
     Dates: start: 20070308
  4. SERETIDE [Concomitant]
     Indication: ASTHMA
     Route: 055
     Dates: start: 20070209

REACTIONS (2)
  - COLOUR BLINDNESS [None]
  - VISION BLURRED [None]
